FAERS Safety Report 19047501 (Version 3)
Quarter: 2021Q2

REPORT INFORMATION
  Report Type: Report from Study
  Country: AR (occurrence: AR)
  Receive Date: 20210323
  Receipt Date: 20210504
  Transmission Date: 20210717
  Serious: Yes (Other)
  Sender: FDA-Public Use
  Company Number: NVSC2021AR059171

PATIENT
  Age: 76 Year
  Sex: Female

DRUGS (6)
  1. AFINITOR [Suspect]
     Active Substance: EVEROLIMUS
     Indication: NEUROENDOCRINE TUMOUR
     Dosage: 10 MG, QD
     Route: 048
     Dates: start: 20210301
  2. AFINITOR [Suspect]
     Active Substance: EVEROLIMUS
     Indication: NEOPLASM
     Dosage: 1 OF 10 MG (START DATE: 1 MONTH AGO)
     Route: 065
  3. AFINITOR [Suspect]
     Active Substance: EVEROLIMUS
     Dosage: 10 MG
     Route: 065
  4. SANDOSTATIN LAR DEPOT [Suspect]
     Active Substance: OCTREOTIDE ACETATE
     Indication: LUNG NEOPLASM
  5. SANDOSTATIN LAR DEPOT [Suspect]
     Active Substance: OCTREOTIDE ACETATE
  6. SANDOSTATIN LAR DEPOT [Suspect]
     Active Substance: OCTREOTIDE ACETATE
     Indication: SMALL INTESTINE CARCINOMA
     Dosage: 1 OF 30 ML (EVERY 28 DAYS) (START DATE: APPROXIMATELY 2 YEARS AGO)
     Route: 065

REACTIONS (12)
  - Metastases to peritoneum [Not Recovered/Not Resolved]
  - Skin discolouration [Recovered/Resolved]
  - Hypersensitivity [Unknown]
  - Blood glucose increased [Not Recovered/Not Resolved]
  - Aphthous ulcer [Unknown]
  - Product use in unapproved indication [Unknown]
  - Pain [Recovered/Resolved]
  - Small intestine carcinoma [Unknown]
  - Malignant neoplasm progression [Unknown]
  - Lung neoplasm [Unknown]
  - Eczema [Recovering/Resolving]
  - Pruritus [Unknown]

NARRATIVE: CASE EVENT DATE: 20210301
